FAERS Safety Report 4389754-0 (Version None)
Quarter: 2004Q2

REPORT INFORMATION
  Report Type: 
  Country: None (occurrence: None)
  Receive Date: 20040630
  Receipt Date: 20040616
  Transmission Date: 20050107
  Serious: Yes (Other)
  Sender: FDA-Public Use
  Company Number: 2004-06-1003

PATIENT
  Age: 14 Year
  Sex: Male
  Weight: 45 kg

DRUGS (5)
  1. TEMODAL [Suspect]
     Indication: GLIOBLASTOMA
     Dosage: 75-110 MG/M2 ORAL
     Route: 048
     Dates: start: 20040509, end: 20040518
  2. TEMODAL [Suspect]
     Indication: GLIOBLASTOMA
     Dosage: 75-110 MG/M2 ORAL
     Route: 048
     Dates: start: 20040519
  3. RADIATION THERAPY NO DOSE FORM [Suspect]
     Indication: GLIOBLASTOMA
     Dosage: 5 D/W X-RAY THER
     Dates: start: 20040429, end: 20040615
  4. DEXAMETHASONE [Concomitant]
  5. NEURONTIN [Concomitant]

REACTIONS (1)
  - HAEMATURIA [None]
